FAERS Safety Report 12743583 (Version 10)
Quarter: 2017Q2

REPORT INFORMATION
  Report Type: Report from Study
  Country: US (occurrence: US)
  Receive Date: 20160914
  Receipt Date: 20170609
  Transmission Date: 20170830
  Serious: Yes (Hospitalization, Other)
  Sender: FDA-Public Use
  Company Number: US-GILEAD-2016-0233004

PATIENT
  Age: 70 Year
  Sex: Female
  Weight: 69.84 kg

DRUGS (6)
  1. AMBRISENTAN [Suspect]
     Active Substance: AMBRISENTAN
     Indication: PULMONARY HYPERTENSION
     Dosage: 10 MG, QD
     Route: 065
     Dates: start: 20160608
  2. UPTRAVI [Suspect]
     Active Substance: SELEXIPAG
     Dosage: 1600 UG, BID
     Route: 065
  3. ELIQUIS [Concomitant]
     Active Substance: APIXABAN
  4. AMBRISENTAN [Suspect]
     Active Substance: AMBRISENTAN
     Indication: SCLERODERMA
  5. UPTRAVI [Suspect]
     Active Substance: SELEXIPAG
     Indication: PRODUCT USED FOR UNKNOWN INDICATION
     Dosage: 1400 UG, BID
     Route: 065
  6. ADCIRCA [Concomitant]
     Active Substance: TADALAFIL

REACTIONS (8)
  - Diarrhoea [Unknown]
  - Onychomalacia [Unknown]
  - Pain in extremity [Not Recovered/Not Resolved]
  - Pneumothorax [Unknown]
  - Unevaluable event [Unknown]
  - Pain in jaw [Not Recovered/Not Resolved]
  - Haematochezia [Unknown]
  - Headache [Not Recovered/Not Resolved]

NARRATIVE: CASE EVENT DATE: 20161128
